FAERS Safety Report 23955977 (Version 1)
Quarter: 2024Q2

REPORT INFORMATION
  Report Type: Spontaneous
  Country: US (occurrence: US)
  Receive Date: 20240610
  Receipt Date: 20240610
  Transmission Date: 20240716
  Serious: Yes (Other)
  Sender: FDA-Public Use
  Company Number: US-MYLANLABS-2024M1051865

PATIENT
  Age: 26 Year
  Sex: Female

DRUGS (5)
  1. DOXEPIN [Suspect]
     Active Substance: DOXEPIN
     Indication: Chronic spontaneous urticaria
     Dosage: 100 MILLIGRAM, QD
     Route: 065
  2. MONTELUKAST [Suspect]
     Active Substance: MONTELUKAST SODIUM
     Indication: Chronic spontaneous urticaria
     Dosage: UNK
     Route: 065
  3. PREDNISONE [Suspect]
     Active Substance: PREDNISONE
     Indication: Chronic spontaneous urticaria
     Dosage: 300 MILLIGRAM, BID
     Route: 065
  4. FEXOFENADINE [Suspect]
     Active Substance: FEXOFENADINE HYDROCHLORIDE
     Indication: Chronic spontaneous urticaria
     Dosage: 720 MILLIGRAM, QD
     Route: 065
  5. OMALIZUMAB [Suspect]
     Active Substance: OMALIZUMAB
     Indication: Chronic spontaneous urticaria
     Dosage: 300 MILLIGRAM, BIWEEKLY (RECEIVED PER 14DAY)
     Route: 065

REACTIONS (4)
  - Drug ineffective for unapproved indication [Unknown]
  - Musculoskeletal disorder [Unknown]
  - Metabolic disorder [Unknown]
  - Off label use [Unknown]
